FAERS Safety Report 8537669 (Version 3)
Quarter: 2012Q4

REPORT INFORMATION
  Report Type: 
  Country: GB (occurrence: GB)
  Receive Date: 20120501
  Receipt Date: 20121009
  Transmission Date: 20130627
  Serious: Yes (Other)
  Sender: FDA-Public Use
  Company Number: PHFR2012GB002563

PATIENT
  Age: 2 None
  Sex: Female

DRUGS (1)
  1. TEGRETOL [Suspect]
     Indication: FEBRILE CONVULSION
     Dosage: 2.25 ml, BID
     Route: 048

REACTIONS (2)
  - Infection [Recovered/Resolved]
  - Febrile convulsion [Recovered/Resolved]
